FAERS Safety Report 23617647 (Version 1)
Quarter: 2024Q1

REPORT INFORMATION
  Report Type: Spontaneous
  Country: US (occurrence: None)
  Receive Date: 20240308
  Receipt Date: 20240308
  Transmission Date: 20240409
  Serious: Yes (Other)
  Sender: FDA-Public Use
  Company Number: None

PATIENT
  Age: 23 Year
  Sex: Female
  Weight: 90.72 kg

DRUGS (9)
  1. KYLEENA [Suspect]
     Active Substance: LEVONORGESTREL
  2. IUD NOS [Concomitant]
     Active Substance: COPPER OR LEVONORGESTREL
  3. LAMOTRIGINE [Concomitant]
     Active Substance: LAMOTRIGINE
  4. VRAYLAR [Concomitant]
     Active Substance: CARIPRAZINE
  5. ATOMOXETINE [Concomitant]
     Active Substance: ATOMOXETINE\ATOMOXETINE HYDROCHLORIDE
  6. MYDAYIS [Concomitant]
     Active Substance: AMPHETAMINE ASPARTATE\AMPHETAMINE SULFATE\DEXTROAMPHETAMINE SACCHARATE\DEXTROAMPHETAMINE SULFATE
  7. LEVOTHYROXINE [Concomitant]
     Active Substance: LEVOTHYROXINE\LEVOTHYROXINE SODIUM
  8. METFOR [Concomitant]
  9. ASCORBIC ACID\IRON [Concomitant]
     Active Substance: ASCORBIC ACID\IRON

REACTIONS (2)
  - Exposure during pregnancy [None]
  - Pregnancy with contraceptive device [None]

NARRATIVE: CASE EVENT DATE: 20240110
